FAERS Safety Report 9310610 (Version 1)
Quarter: 2013Q2

REPORT INFORMATION
  Report Type: Spontaneous
  Country: US (occurrence: US)
  Receive Date: 20130527
  Receipt Date: 20130527
  Transmission Date: 20140414
  Serious: Yes (Other)
  Sender: FDA-Public Use
  Company Number: US-AMGEN-USASP2013036770

PATIENT
  Age: 76 Year
  Sex: Female

DRUGS (2)
  1. XGEVA [Suspect]
     Indication: BREAST CANCER METASTATIC
     Dosage: 120 MG, Q4WK
     Dates: start: 2012
  2. XELODA [Concomitant]
     Dosage: UNK
     Dates: start: 201202, end: 201304

REACTIONS (6)
  - Metastases to neck [Unknown]
  - Loose tooth [Unknown]
  - Pain [Unknown]
  - Pain in jaw [Unknown]
  - Mouth ulceration [Recovering/Resolving]
  - Neck pain [Unknown]
